FAERS Safety Report 4905114-5 (Version None)
Quarter: 2006Q1

REPORT INFORMATION
  Report Type: 
  Country: None (occurrence: None)
  Receive Date: 20060208
  Receipt Date: 20051116
  Transmission Date: 20060701
  Serious: No
  Sender: FDA-Public Use
  Company Number: US-GLAXOSMITHKLINE-A0582556A

PATIENT
  Age: 59 Year
  Sex: Male

DRUGS (7)
  1. PAROXETINE HCL [Suspect]
     Indication: DEPRESSION
     Dosage: 80MG PER DAY
     Route: 048
  2. DDAVP [Concomitant]
  3. BUPROPION [Concomitant]
  4. ALBUTEROL [Concomitant]
  5. ALLEGRA [Concomitant]
  6. ADVAIR DISKUS 100/50 [Concomitant]
  7. NASACORT [Concomitant]

REACTIONS (2)
  - DRUG INEFFECTIVE [None]
  - TENSION [None]
